FAERS Safety Report 6655141-5 (Version None)
Quarter: 2010Q1

REPORT INFORMATION
  Report Type: 
  Country: None (occurrence: None)
  Receive Date: 20100329
  Receipt Date: 20091218
  Transmission Date: 20100710
  Serious: Yes (Life-Threatening, Hospitalization)
  Sender: FDA-Public Use
  Company Number: BE-JNJFOC-20090203901

PATIENT
  Age: 63 Year
  Sex: Female

DRUGS (4)
  1. TAVANIC [Suspect]
     Indication: HAEMATURIA
     Route: 048
  2. TRADONAL [Concomitant]
     Route: 048
  3. ASPIRIN [Concomitant]
     Indication: DIABETES MELLITUS
     Route: 048
  4. GLURENORM [Concomitant]
     Indication: DIABETES MELLITUS
     Route: 048

REACTIONS (5)
  - ABDOMINAL PAIN [None]
  - EPILEPSY [None]
  - MENINGIOMA [None]
  - THROMBOTIC THROMBOCYTOPENIC PURPURA [None]
  - TRANSIENT ISCHAEMIC ATTACK [None]
